FAERS Safety Report 8365992-7 (Version None)
Quarter: 2012Q2

REPORT INFORMATION
  Report Type: 
  Country: None (occurrence: None)
  Receive Date: 20120517
  Receipt Date: 20120514
  Transmission Date: 20120825
  Serious: Yes (Other)
  Sender: FDA-Public Use
  Company Number: US-PFIZER INC-2012117186

PATIENT
  Sex: Male

DRUGS (2)
  1. CHANTIX [Suspect]
     Dosage: 1 MG, UNK
     Dates: start: 20120501
  2. CHANTIX [Suspect]
     Dosage: UNK
     Dates: start: 20120507, end: 20120501

REACTIONS (3)
  - DIARRHOEA [None]
  - VOMITING [None]
  - NAUSEA [None]
